FAERS Safety Report 9515457 (Version 2)
Quarter: 2013Q3

REPORT INFORMATION
  Report Type: Spontaneous
  Country: DE (occurrence: DE)
  Receive Date: 20130911
  Receipt Date: 20130917
  Transmission Date: 20140515
  Serious: Yes (Other)
  Sender: FDA-Public Use
  Company Number: DE-PFIZER INC-2013260157

PATIENT
  Age: 84 Year
  Sex: Female

DRUGS (8)
  1. CORDAREX [Suspect]
     Indication: ATRIAL FIBRILLATION
     Dosage: 200 MG, UNK
     Route: 048
     Dates: start: 2011
  2. FUROSEMIDE ^RATIOPHARM^ [Concomitant]
     Dosage: UNK
  3. METOPROLOL [Concomitant]
     Dosage: UNK
  4. ASA [Concomitant]
     Indication: CARDIAC DISORDER
     Dosage: UNK
  5. NOVAMINSULFON LICHTENSTEIN [Concomitant]
     Dosage: UNK
  6. ALLOPURINOL-RATIOPHARM [Concomitant]
  7. SIMVASTATIN [Concomitant]
  8. L-THYROXIN HENNING [Concomitant]
     Dosage: 50 UG, UNK

REACTIONS (2)
  - Hypothyroidism [Not Recovered/Not Resolved]
  - Blood creatinine increased [Not Recovered/Not Resolved]
